FAERS Safety Report 16809445 (Version 1)
Quarter: 2019Q3

REPORT INFORMATION
  Report Type: Spontaneous
  Country: DE (occurrence: DE)
  Receive Date: 20190916
  Receipt Date: 20190916
  Transmission Date: 20191005
  Serious: Yes (Congenital Anomaly, Other)
  Sender: FDA-Public Use
  Company Number: DE-HIKMA PHARMACEUTICALS USA INC.-DE-H14001-19-46925

PATIENT
  Age: 8 Month
  Sex: Male
  Weight: 3.41 kg

DRUGS (2)
  1. LEVETIRACETAM. [Suspect]
     Active Substance: LEVETIRACETAM
     Indication: EPILEPSY
     Dosage: 6000 [MG/D ]/ INCREASED DOSAGE (6G/D) DURING THE THIRD TRIMESTER BECAUSE OF INCREASED CLEARANCE ()
     Route: 064
     Dates: start: 2016, end: 20160909
  2. LEVETIRACETAM. [Suspect]
     Active Substance: LEVETIRACETAM
     Dosage: INCREASING DOSE ()
     Route: 064

REACTIONS (6)
  - Selective eating disorder [Recovered/Resolved]
  - Brain malformation [Not Recovered/Not Resolved]
  - Foetal exposure during pregnancy [Unknown]
  - Hypotonia neonatal [Recovered/Resolved]
  - Cerebral cyst [Not Recovered/Not Resolved]
  - Atrial septal defect [Recovered/Resolved]

NARRATIVE: CASE EVENT DATE: 20151231
